FAERS Safety Report 8764284 (Version 2)
Quarter: 2012Q4

REPORT INFORMATION
  Report Type: 
  Country: FR (occurrence: FR)
  Receive Date: 20120831
  Receipt Date: 20120913
  Transmission Date: 20130627
  Serious: Yes (Death, Life-Threatening, Hospitalization)
  Sender: FDA-Public Use
  Company Number: FR-VERTEX PHARMACEUTICAL INC.-000000000000000337

PATIENT
  Age: 54 Year
  Sex: Male
  Weight: 65 kg

DRUGS (6)
  1. INCIVO [Suspect]
     Indication: HEPATITIS C
     Dosage: 750 mg, tid
     Route: 048
     Dates: start: 20111027, end: 20120123
  2. COPEGUS [Suspect]
     Indication: HEPATITIS C
     Dosage: 800 mg, bid
     Route: 048
     Dates: start: 20111027
  3. COPEGUS [Suspect]
     Indication: HEPATITIS C
     Dosage: 1200 mg, qd
     Route: 048
     Dates: start: 20111208, end: 20120123
  4. PEGASYS [Suspect]
     Indication: HEPATITIS C
     Dosage: 180 ?g, weekly
     Route: 058
     Dates: start: 20111027, end: 20120123
  5. DEDROGYL [Suspect]
     Indication: PRODUCT USED FOR UNKNOWN INDICATION
     Dosage: 10 Gtt, qd
     Route: 048
     Dates: start: 20111027, end: 20111208
  6. NEORECORMON [Concomitant]
     Route: 058

REACTIONS (15)
  - Shock haemorrhagic [Unknown]
  - Enterocutaneous fistula [Unknown]
  - Gastrointestinal necrosis [Fatal]
  - Pancreatitis necrotising [Fatal]
  - Pulmonary embolism [Unknown]
  - Thrombocytopenia [Unknown]
  - Shock [Unknown]
  - Pseudomonas infection [Unknown]
  - Multi-organ failure [Unknown]
  - Candida sepsis [Unknown]
  - Asthmatic crisis [Unknown]
  - Headache [Unknown]
  - Asthenia [Unknown]
  - Muscle fatigue [Unknown]
  - Haemoglobin decreased [Unknown]
